FAERS Safety Report 8339536-X (Version None)
Quarter: 2012Q2

REPORT INFORMATION
  Report Type: 
  Country: None (occurrence: None)
  Receive Date: 20120507
  Receipt Date: 20120430
  Transmission Date: 20120825
  Serious: Yes (Hospitalization, Disabling)
  Sender: FDA-Public Use
  Company Number: PHHO2010FR17602

PATIENT
  Sex: Male
  Weight: 68 kg

DRUGS (5)
  1. IMATINIB MESYLATE [Suspect]
     Dosage: 400 MG, QD
     Dates: start: 20100113, end: 20100429
  2. IMATINIB MESYLATE [Suspect]
     Dosage: 500 MG, QD
     Dates: start: 20041201, end: 20050329
  3. IMATINIB MESYLATE [Suspect]
     Dosage: 600 MG, QD
     Route: 048
     Dates: start: 20050330, end: 20100112
  4. IMATINIB MESYLATE [Suspect]
     Indication: CHRONIC MYELOID LEUKAEMIA
     Dosage: 300 MG, QD
     Dates: start: 20030701, end: 20030826
  5. IMATINIB MESYLATE [Suspect]
     Dosage: 400 MG, QD
     Dates: start: 20030827, end: 20041130

REACTIONS (5)
  - DYSPHAGIA [None]
  - INCLUSION BODY MYOSITIS [None]
  - GAIT DISTURBANCE [None]
  - MUSCULAR WEAKNESS [None]
  - BALANCE DISORDER [None]
